FAERS Safety Report 14436934 (Version 1)
Quarter: 2018Q1

REPORT INFORMATION
  Report Type: Spontaneous
  Country: US (occurrence: US)
  Receive Date: 20180125
  Receipt Date: 20180125
  Transmission Date: 20180509
  Serious: No
  Sender: FDA-Public Use
  Company Number: US-UNITED THERAPEUTICS-UNT-2017-010523

PATIENT
  Sex: Female

DRUGS (3)
  1. REMODULIN [Suspect]
     Active Substance: TREPROSTINIL
     Dosage: 0.0239 ?G/KG, CONTINUING
     Route: 058
  2. REMODULIN [Suspect]
     Active Substance: TREPROSTINIL
     Dosage: 0.0254 MICROGRAMS, CONTINUING
     Route: 058
     Dates: start: 20170210
  3. REMODULIN [Suspect]
     Active Substance: TREPROSTINIL
     Indication: PULMONARY ARTERIAL HYPERTENSION
     Dosage: 0.0187 ?G/KG, CONTINUING
     Route: 058
     Dates: start: 20151230

REACTIONS (5)
  - Infusion site infection [Recovering/Resolving]
  - Infusion site rash [Unknown]
  - Infusion site erythema [Recovered/Resolved]
  - Infusion site pruritus [Recovering/Resolving]
  - Infusion site discharge [Recovered/Resolved]

NARRATIVE: CASE EVENT DATE: 20170711
